FAERS Safety Report 15775480 (Version 2)
Quarter: 2019Q1

REPORT INFORMATION
  Report Type: Spontaneous
  Country: US (occurrence: US)
  Receive Date: 20181231
  Receipt Date: 20190212
  Transmission Date: 20190417
  Serious: No
  Sender: FDA-Public Use
  Company Number: US-BRISTOL-MYERS SQUIBB COMPANY-BMS-2018-122862

PATIENT
  Sex: Female

DRUGS (1)
  1. ELIQUIS [Suspect]
     Active Substance: APIXABAN
     Indication: CEREBROVASCULAR ACCIDENT PROPHYLAXIS
     Dosage: THINKS AS TAKING A DOSE OF ^10^
     Route: 048
     Dates: start: 201811

REACTIONS (8)
  - Hypersensitivity [Unknown]
  - Headache [Unknown]
  - Osteoarthritis [Unknown]
  - Gastrointestinal pain [Unknown]
  - Swelling [Unknown]
  - Diarrhoea [Unknown]
  - Tinnitus [Unknown]
  - Vulvovaginal dryness [Unknown]
